FAERS Safety Report 9798806 (Version 1)
Quarter: 2014Q1

REPORT INFORMATION
  Report Type: Spontaneous
  Country: US (occurrence: US)
  Receive Date: 20140106
  Receipt Date: 20140106
  Transmission Date: 20141002
  Serious: No
  Sender: FDA-Public Use
  Company Number: US-GILEAD-2010-0032201

PATIENT
  Age: 77 Year
  Sex: Female

DRUGS (12)
  1. LETAIRIS [Suspect]
     Indication: PULMONARY ARTERIAL HYPERTENSION
     Route: 048
     Dates: start: 20091109
  2. ASPIRIN [Concomitant]
  3. LISINOPRIL-HCTZ [Concomitant]
  4. PROPRANOLOL [Concomitant]
  5. CO Q-10 [Concomitant]
  6. CITALOPRAM HBR [Concomitant]
  7. FOSAMAX [Concomitant]
  8. FLUTICASON PROP [Concomitant]
  9. OXYBUTIN [Concomitant]
  10. OMEPRAZOLE DR [Concomitant]
  11. PRAVASTATIN SODIUM [Concomitant]
  12. FEFFOUS SULFATE [Concomitant]

REACTIONS (2)
  - Vomiting [Unknown]
  - Constipation [Unknown]
